FAERS Safety Report 8249218-0 (Version None)
Quarter: 2012Q1

REPORT INFORMATION
  Report Type: 
  Country: None (occurrence: None)
  Receive Date: 20120315
  Receipt Date: 20120308
  Transmission Date: 20120608
  Serious: Yes (Hospitalization)
  Sender: FDA-Public Use
  Company Number: 2011028180

PATIENT
  Age: 54 Year
  Sex: Female
  Weight: 78.9259 kg

DRUGS (22)
  1. THIAMINE HCL [Concomitant]
  2. PULMICORT [Concomitant]
  3. SINGULAIR [Concomitant]
  4. MULTIVITAMIN (DAILY MULTIVITAMIN) [Concomitant]
  5. FORADIL [Concomitant]
  6. ALBUTEROL [Concomitant]
  7. PROTONIX [Concomitant]
  8. ZEMAIRA [Suspect]
     Indication: ALPHA-1 ANTI-TRYPSIN DEFICIENCY
  9. ZAROXOLYN [Concomitant]
  10. HEPARIN [Concomitant]
  11. NEXIUM [Concomitant]
  12. PREDNISONE TAB [Concomitant]
  13. LASIX (INSULIN GLARGINE) [Concomitant]
  14. DILTIAZEM HCL [Concomitant]
  15. ZEMAIRA [Suspect]
     Indication: ALPHA-1 ANTI-TRYPSIN DEFICIENCY
     Dosage: 60 MG/KG 1X/WEEK, AT RATE OF 0.08 ML PER KG PER MINUTE INTRAVENOUS (NOT OTHERWISE SPECIFIED)
     Route: 042
     Dates: start: 20100401
  16. ZEMAIRA [Suspect]
     Dosage: 60 MG/KG 1X/WEEK, 0.08 ML /KG/MIN INTRAVENOUS (NOT OTHERWISE SPECIFIED))
     Route: 042
     Dates: start: 20120228
  17. LANTUS [Concomitant]
  18. FLEXERIL [Concomitant]
  19. SPIRIVA [Concomitant]
  20. VITAMIN B12 (CYANOCOBALAMIN-TANNIN COMPLEX) [Concomitant]
  21. DIGOXIN [Concomitant]
  22. DOXYCYCLINE [Concomitant]

REACTIONS (2)
  - PRODUCTIVE COUGH [None]
  - PNEUMONIA [None]
